FAERS Safety Report 7342819-3 (Version None)
Quarter: 2011Q1

REPORT INFORMATION
  Report Type: 
  Country: None (occurrence: None)
  Receive Date: 20110228
  Receipt Date: 20110218
  Transmission Date: 20110831
  Serious: Yes (Hospitalization)
  Sender: FDA-Public Use
  Company Number: AEUSA201100034

PATIENT
  Age: 45 Year
  Sex: Male

DRUGS (1)
  1. PROLASTIN-C [Suspect]
     Indication: ALPHA-1 ANTI-TRYPSIN DEFICIENCY
     Dosage: 6940 MG;QW;IV
     Route: 042
     Dates: start: 20110210

REACTIONS (3)
  - VOMITING [None]
  - NAUSEA [None]
  - ABDOMINAL DISCOMFORT [None]
